FAERS Safety Report 7592697-2 (Version None)
Quarter: 2011Q3

REPORT INFORMATION
  Report Type: 
  Country: None (occurrence: None)
  Receive Date: 20110706
  Receipt Date: 20110629
  Transmission Date: 20111222
  Serious: No
  Sender: FDA-Public Use
  Company Number: US-PFIZER INC-2011146604

PATIENT
  Sex: Female

DRUGS (5)
  1. HYDROCODONE [Concomitant]
  2. LIPITOR [Suspect]
  3. CELEXA [Concomitant]
  4. CELEBREX [Concomitant]
  5. LORAZEPAM [Concomitant]

REACTIONS (2)
  - BACK PAIN [None]
  - DEPRESSION [None]
